FAERS Safety Report 13197079 (Version 7)
Quarter: 2018Q2

REPORT INFORMATION
  Report Type: Spontaneous
  Country: US (occurrence: US)
  Receive Date: 20170208
  Receipt Date: 20180529
  Transmission Date: 20180711
  Serious: Yes (Hospitalization, Other)
  Sender: FDA-Public Use
  Company Number: US-ASTELLAS-2017US004193

PATIENT
  Sex: Male

DRUGS (2)
  1. XTANDI [Suspect]
     Active Substance: ENZALUTAMIDE
     Indication: PROSTATE CANCER
  2. XTANDI [Suspect]
     Active Substance: ENZALUTAMIDE
     Indication: NEOPLASM PROSTATE
     Route: 048
     Dates: start: 20160809

REACTIONS (8)
  - Decreased appetite [Unknown]
  - Cellulitis [Not Recovered/Not Resolved]
  - Anosmia [Unknown]
  - Influenza like illness [Unknown]
  - Pruritus [Not Recovered/Not Resolved]
  - Myocardial infarction [Recovered/Resolved]
  - Ageusia [Unknown]
  - Poor peripheral circulation [Not Recovered/Not Resolved]
